FAERS Safety Report 23343702 (Version 1)
Quarter: 2023Q4

REPORT INFORMATION
  Report Type: Report from Study
  Country: CN (occurrence: None)
  Receive Date: 20231227
  Receipt Date: 20231227
  Transmission Date: 20240110
  Serious: Yes (Other)
  Sender: FDA-Public Use
  Company Number: 2023A151047

PATIENT
  Age: 723 Month
  Sex: Female

DRUGS (16)
  1. OLAPARIB [Suspect]
     Active Substance: OLAPARIB
     Indication: Ovarian epithelial cancer
     Dosage: 300.0MG UNKNOWN
     Route: 048
     Dates: start: 20230211, end: 202303
  2. OLAPARIB [Suspect]
     Active Substance: OLAPARIB
     Indication: Ovarian cancer
     Dosage: 300.0MG UNKNOWN
     Route: 048
     Dates: start: 20230211, end: 202303
  3. OLAPARIB [Suspect]
     Active Substance: OLAPARIB
     Indication: Ovarian epithelial cancer
     Dosage: 300.0MG UNKNOWN
     Route: 048
     Dates: start: 202303
  4. OLAPARIB [Suspect]
     Active Substance: OLAPARIB
     Indication: Ovarian cancer
     Dosage: 300.0MG UNKNOWN
     Route: 048
     Dates: start: 202303
  5. OLAPARIB [Suspect]
     Active Substance: OLAPARIB
     Indication: Ovarian epithelial cancer
     Dosage: 300.0MG UNKNOWN
     Route: 048
     Dates: start: 202305, end: 20230629
  6. OLAPARIB [Suspect]
     Active Substance: OLAPARIB
     Indication: Ovarian cancer
     Dosage: 300.0MG UNKNOWN
     Route: 048
     Dates: start: 202305, end: 20230629
  7. OLAPARIB [Suspect]
     Active Substance: OLAPARIB
     Indication: Ovarian epithelial cancer
     Dosage: 300.0MG UNKNOWN
     Route: 048
     Dates: start: 202305, end: 20230630
  8. OLAPARIB [Suspect]
     Active Substance: OLAPARIB
     Indication: Ovarian cancer
     Dosage: 300.0MG UNKNOWN
     Route: 048
     Dates: start: 202305, end: 20230630
  9. OLAPARIB [Suspect]
     Active Substance: OLAPARIB
     Indication: Ovarian epithelial cancer
     Dosage: 150.0MG UNKNOWN
     Route: 048
     Dates: start: 20230710, end: 20230713
  10. OLAPARIB [Suspect]
     Active Substance: OLAPARIB
     Indication: Ovarian cancer
     Dosage: 150.0MG UNKNOWN
     Route: 048
     Dates: start: 20230710, end: 20230713
  11. OLAPARIB [Suspect]
     Active Substance: OLAPARIB
     Indication: Ovarian epithelial cancer
     Dosage: 150.0MG UNKNOWN
     Route: 048
     Dates: start: 20230727
  12. OLAPARIB [Suspect]
     Active Substance: OLAPARIB
     Indication: Ovarian cancer
     Dosage: 150.0MG UNKNOWN
     Route: 048
     Dates: start: 20230727
  13. BEVACIZUMAB [Concomitant]
     Active Substance: BEVACIZUMAB
     Indication: Ovarian cancer
     Dates: start: 20230114
  14. POLYENE PHOSPHATIDYLCHOLINE CAPSULES [Concomitant]
     Indication: Hepatic function abnormal
     Dates: start: 20230331
  15. TRICLOSAN/HALOMETASONE [Concomitant]
     Indication: Dermatitis
     Dates: start: 20230213
  16. HUMAN GRANULOCYTE COLONY-STIMULATING FACTOR INJECTION [Concomitant]
     Indication: Myelosuppression
     Dates: start: 20221203

REACTIONS (1)
  - Myelosuppression [Recovered/Resolved]

NARRATIVE: CASE EVENT DATE: 20230623
